FAERS Safety Report 5015043-7 (Version None)
Quarter: 2006Q2

REPORT INFORMATION
  Report Type: 
  Country: None (occurrence: None)
  Receive Date: 20060530
  Receipt Date: 20060520
  Transmission Date: 20061013
  Serious: No
  Sender: FDA-Public Use
  Company Number: 223393

PATIENT
  Age: 15 Year
  Sex: Male

DRUGS (2)
  1. MABTHERA                   (RITUXIMAB) [Suspect]
     Dosage: 650 MG, INTRAVENOUS
     Route: 042
     Dates: start: 20060228, end: 20060228
  2. ALLOPURINOL [Concomitant]

REACTIONS (4)
  - BLOOD PRESSURE DECREASED [None]
  - ERYTHEMA [None]
  - FALL [None]
  - HYPOTONIA [None]
